FAERS Safety Report 7116282-1 (Version None)
Quarter: 2010Q4

REPORT INFORMATION
  Report Type: 
  Country: None (occurrence: None)
  Receive Date: 20101122
  Receipt Date: 20101112
  Transmission Date: 20110411
  Serious: Yes (Disabling)
  Sender: FDA-Public Use
  Company Number: JP-ASTRAZENECA-2010SE48639

PATIENT
  Age: 59 Year
  Sex: Male
  Weight: 76 kg

DRUGS (3)
  1. DIPRIVAN [Suspect]
     Indication: GENERAL ANAESTHESIA
     Dosage: STARTED WITH THE TARGET BLOOD LEVEL: 4 MG/KG/HR
     Route: 042
     Dates: start: 20100423, end: 20100423
  2. SEVOFLURANE [Concomitant]
     Indication: GENERAL ANAESTHESIA
     Dosage: DOSE UNKNOWN
     Route: 055
  3. REMIFENTANIL HYDROCHLORIDE [Concomitant]
     Indication: GENERAL ANAESTHESIA
     Dosage: DOSE UNKNOWN
     Route: 042

REACTIONS (1)
  - EPILEPSY [None]
